FAERS Safety Report 20734151 (Version 1)
Quarter: 2022Q2

REPORT INFORMATION
  Report Type: Spontaneous
  Country: US (occurrence: US)
  Receive Date: 20220421
  Receipt Date: 20220421
  Transmission Date: 20220721
  Serious: No
  Sender: FDA-Public Use
  Company Number: US-ELI_LILLY_AND_COMPANY-US202204009462

PATIENT
  Age: 15 Year
  Sex: Female

DRUGS (2)
  1. TALTZ [Suspect]
     Active Substance: IXEKIZUMAB
     Indication: Psoriasis
     Dosage: UNK UNK, UNKNOWN
     Route: 065
     Dates: start: 20211218, end: 20211220
  2. TALTZ [Suspect]
     Active Substance: IXEKIZUMAB
     Dosage: 80 MG, OTHER(EVERY FOUR WEEKS)
     Route: 065

REACTIONS (5)
  - Psoriasis [Unknown]
  - Intervertebral disc degeneration [Unknown]
  - Injection site erythema [Unknown]
  - Injection site pain [Unknown]
  - Hypersensitivity [Unknown]
